FAERS Safety Report 10237751 (Version 6)
Quarter: 2014Q4

REPORT INFORMATION
  Report Type: Spontaneous
  Country: IT (occurrence: IT)
  Receive Date: 20140616
  Receipt Date: 20141020
  Transmission Date: 20150528
  Serious: Yes (Hospitalization)
  Sender: FDA-Public Use
  Company Number: IT-009507513-1406ITA006099

PATIENT
  Age: 61 Year
  Sex: Male

DRUGS (14)
  1. VASORETIC 20 MG + 12,5 MG COMPRESSE [Suspect]
     Active Substance: ENALAPRIL MALEATE\HYDROCHLOROTHIAZIDE
     Indication: INTENTIONAL SELF-INJURY
     Dosage: 227.5 MG TOTAL
     Route: 048
     Dates: start: 20140423, end: 20140423
  2. ZEFFIX [Suspect]
     Active Substance: LAMIVUDINE
     Indication: INTENTIONAL SELF-INJURY
     Dosage: 140 MG
     Route: 048
     Dates: start: 20140423, end: 20140423
  3. LANSOPRAZOLE. [Suspect]
     Active Substance: LANSOPRAZOLE
     Indication: INTENTIONAL SELF-INJURY
     Dosage: 105 MG TOTAL
     Route: 048
     Dates: start: 20140423, end: 20140423
  4. SIMVASTATIN. [Suspect]
     Active Substance: SIMVASTATIN
     Indication: INTENTIONAL SELF-INJURY
     Dosage: 280 MG TOTAL
     Route: 048
     Dates: start: 20140423, end: 20140423
  5. LANSOPRAZOLE. [Suspect]
     Active Substance: LANSOPRAZOLE
     Dosage: 2 TABLETS, DAILY
     Route: 048
  6. CITALOPRAM [Suspect]
     Active Substance: CITALOPRAM HYDROBROMIDE
     Indication: INTENTIONAL SELF-INJURY
     Dosage: 280 MG TOTAL
     Route: 048
     Dates: start: 20140423, end: 20140423
  7. VASORETIC 20 MG + 12,5 MG COMPRESSE [Suspect]
     Active Substance: ENALAPRIL MALEATE\HYDROCHLOROTHIAZIDE
     Dosage: 1 TABLET DAILY
     Route: 048
  8. DENIBAN [Suspect]
     Active Substance: AMISULPRIDE
     Indication: INTENTIONAL SELF-INJURY
     Dosage: 500 MG
     Route: 048
     Dates: start: 20140423, end: 20140423
  9. ZOLPIDEM TARTRATE. [Suspect]
     Active Substance: ZOLPIDEM TARTRATE
     Indication: INTENTIONAL SELF-INJURY
     Dosage: 50 MG, TOTAL
     Route: 048
     Dates: start: 20140423, end: 20140423
  10. METFORMIN [Suspect]
     Active Substance: METFORMIN HYDROCHLORIDE
     Indication: INTENTIONAL SELF-INJURY
     Dosage: 35000 MG TOTAL
     Route: 048
     Dates: start: 20140423, end: 20140423
  11. METFORMIN [Suspect]
     Active Substance: METFORMIN HYDROCHLORIDE
     Indication: DIABETES MELLITUS
     Dosage: 1000 MG, 3 TABLETS DAILY
     Route: 048
  12. CITALOPRAM [Suspect]
     Active Substance: CITALOPRAM HYDROBROMIDE
     Dosage: 2 TABLETS, DAILY
     Route: 048
  13. SIMVASTATIN. [Suspect]
     Active Substance: SIMVASTATIN
     Dosage: 1 TABLET, DAILY
     Route: 048
  14. DENIBAN [Suspect]
     Active Substance: AMISULPRIDE
     Dosage: 2 TABLETS, DAILY
     Route: 048

REACTIONS (5)
  - Conduction disorder [Recovered/Resolved]
  - Metabolic acidosis [Recovered/Resolved]
  - Hypotension [Recovered/Resolved]
  - Intentional self-injury [Recovered/Resolved]
  - Depressed level of consciousness [Recovered/Resolved]

NARRATIVE: CASE EVENT DATE: 20140423
